FAERS Safety Report 9924886 (Version 1)
Quarter: 2014Q1

REPORT INFORMATION
  Report Type: Spontaneous
  Country: AT (occurrence: AT)
  Receive Date: 20140226
  Receipt Date: 20140226
  Transmission Date: 20141002
  Serious: Yes (Other)
  Sender: FDA-Public Use
  Company Number: AT-ELI_LILLY_AND_COMPANY-AT201402006327

PATIENT
  Age: 19 Year
  Sex: Female
  Weight: 47.9 kg

DRUGS (17)
  1. OLANZAPINE [Suspect]
     Indication: PSYCHOTIC DISORDER
     Dosage: 5 MG, UNKNOWN
     Route: 065
     Dates: start: 20131011, end: 20131016
  2. OLANZAPINE [Suspect]
     Dosage: 7.5 MG, UNKNOWN
     Dates: start: 20131017, end: 20131017
  3. OLANZAPINE [Suspect]
     Dosage: 5 MG, UNKNOWN
     Route: 065
     Dates: start: 20131018, end: 20131021
  4. OLANZAPINE [Suspect]
     Dosage: 1 DF, UNKNOWN
     Dates: start: 20131022, end: 20131023
  5. LEPONEX [Suspect]
     Indication: PRODUCT USED FOR UNKNOWN INDICATION
     Dosage: 25 MG, UNKNOWN
     Route: 065
     Dates: start: 20131029, end: 20131030
  6. MEXALEN [Suspect]
     Indication: HEADACHE
     Dosage: 500 MG, TID
     Route: 065
     Dates: start: 20130930
  7. MEXALEN [Suspect]
     Dosage: 500 MG, UNKNOWN
     Dates: start: 20131019, end: 20131022
  8. OMACOR [Concomitant]
     Indication: PRODUCT USED FOR UNKNOWN INDICATION
     Dosage: 2 DF, UNKNOWN
     Route: 065
     Dates: start: 20131003
  9. PERFALGAN [Concomitant]
     Indication: HEADACHE
     Dosage: 500 MG, SINGLE
     Route: 065
     Dates: start: 20131022, end: 20131022
  10. PASPERTIN [Concomitant]
     Indication: HEADACHE
     Dosage: 1 DF, SINGLE
     Route: 042
     Dates: start: 20131022, end: 20131022
  11. CIPRALEX [Concomitant]
     Dosage: 10 MG, UNKNOWN
     Route: 065
     Dates: start: 20131022, end: 20131022
  12. KCL [Concomitant]
     Indication: PRODUCT USED FOR UNKNOWN INDICATION
     Dosage: 1 DF, QD
     Route: 065
     Dates: start: 20131022, end: 20131023
  13. TEMESTA                            /00273201/ [Concomitant]
     Indication: PRODUCT USED FOR UNKNOWN INDICATION
     Dosage: 0.25 MG, UNKNOWN
     Route: 048
     Dates: start: 20131011, end: 20131029
  14. MAXI-KALZ [Concomitant]
     Indication: PRODUCT USED FOR UNKNOWN INDICATION
     Dosage: 2 DF, UNKNOWN
     Route: 065
  15. ABILIFY [Concomitant]
     Indication: PRODUCT USED FOR UNKNOWN INDICATION
     Dosage: 10 MG, UNKNOWN
     Route: 065
     Dates: start: 20130926, end: 20131011
  16. FRESUBIN [Concomitant]
     Indication: PRODUCT USED FOR UNKNOWN INDICATION
     Dosage: 2 DF, UNKNOWN
     Route: 065
     Dates: start: 20131001, end: 20131014
  17. OLEOVIT [Concomitant]
     Indication: PRODUCT USED FOR UNKNOWN INDICATION
     Dosage: 1 DF, UNKNOWN
     Route: 065
     Dates: start: 20131010

REACTIONS (6)
  - Water intoxication [Unknown]
  - Eating disorder [Unknown]
  - Alanine aminotransferase increased [Not Recovered/Not Resolved]
  - Aspartate aminotransferase increased [Not Recovered/Not Resolved]
  - Gamma-glutamyltransferase increased [Not Recovered/Not Resolved]
  - Blood cholesterol decreased [Unknown]
